FAERS Safety Report 17435655 (Version 1)
Quarter: 2020Q1

REPORT INFORMATION
  Report Type: Report from Study
  Country: None (occurrence: IL)
  Receive Date: 20200219
  Receipt Date: 20200219
  Transmission Date: 20200409
  Serious: Yes (Hospitalization)
  Sender: FDA-Public Use
  Company Number: IL-ABBVIE-20K-082-3280962-00

PATIENT
  Sex: Female

DRUGS (1)
  1. DUODOPA [Suspect]
     Active Substance: CARBIDOPA\LEVODOPA
     Indication: PARKINSON^S DISEASE
     Dosage: CURRENT MD- 6 ML, CR- 3.1 ML/ HOUR, CURRENT ND- 1.5 ML?CURRENT ED- 1.5 ML
     Route: 050
     Dates: start: 20200105

REACTIONS (2)
  - Pleural effusion [Unknown]
  - Lung infiltration [Unknown]

NARRATIVE: CASE EVENT DATE: 2020
